FAERS Safety Report 9915149 (Version 1)
Quarter: 2014Q1

REPORT INFORMATION
  Report Type: Report from Study
  Country: BE (occurrence: BE)
  Receive Date: 20140220
  Receipt Date: 20140220
  Transmission Date: 20141002
  Serious: Yes (Hospitalization, Other)
  Sender: FDA-Public Use
  Company Number: BE-ASTRAZENECA-2014SE11105

PATIENT
  Age: 42 Year
  Sex: Female

DRUGS (3)
  1. STUDY PROCEDURE [Suspect]
     Indication: ACUTE CORONARY SYNDROME
     Route: 065
  2. TICAGRELOR [Suspect]
     Indication: ACUTE CORONARY SYNDROME
     Route: 048
     Dates: start: 20130718
  3. ASPIRIN [Suspect]
     Indication: ACUTE CORONARY SYNDROME
     Route: 048
     Dates: start: 20130718

REACTIONS (1)
  - Angina unstable [Recovered/Resolved]
